FAERS Safety Report 6745421-7 (Version None)
Quarter: 2010Q2

REPORT INFORMATION
  Report Type: 
  Country: None (occurrence: None)
  Receive Date: 20100528
  Receipt Date: 20100520
  Transmission Date: 20101027
  Serious: Yes (Other)
  Sender: FDA-Public Use
  Company Number: US-BAYER-201023076NA

PATIENT
  Sex: Female

DRUGS (2)
  1. LEVLEN 28 [Suspect]
     Indication: CONTRACEPTION
     Route: 048
     Dates: start: 19970101
  2. COUMADIN [Concomitant]

REACTIONS (3)
  - GALLBLADDER OPERATION [None]
  - PULMONARY EMBOLISM [None]
  - VAGINAL HAEMORRHAGE [None]
